FAERS Safety Report 6024457-8 (Version None)
Quarter: 2008Q4

REPORT INFORMATION
  Report Type: 
  Country: None (occurrence: None)
  Receive Date: 20081229
  Receipt Date: 20081229
  Transmission Date: 20090506
  Serious: Yes (Hospitalization)
  Sender: FDA-Public Use
  Company Number: None

PATIENT
  Sex: Male
  Weight: 80 kg

DRUGS (5)
  1. CYCLOPHOSPHAMIDE [Suspect]
     Dosage: 1100 MG
     Dates: start: 20081204, end: 20081204
  2. DOXORUBICIN HYDROCHLORIDE [Suspect]
     Dosage: 70 MG
     Dates: end: 20081204
  3. PREDNISONE [Suspect]
     Dosage: 1000 MG
     Dates: end: 20081208
  4. RITUXIMAB (MOAB C2B8 ANTI CD20, CHIMERIC) [Suspect]
     Dosage: 700 MG
     Dates: end: 20081204
  5. VINCRISTINE SULFATE [Suspect]
     Dosage: 2 MG
     Dates: end: 20081204

REACTIONS (4)
  - COUGH [None]
  - HYPOXIA [None]
  - LUNG INFILTRATION [None]
  - PYREXIA [None]
